FAERS Safety Report 13471901 (Version 3)
Quarter: 2018Q2

REPORT INFORMATION
  Report Type: Spontaneous
  Country: US (occurrence: US)
  Receive Date: 20170424
  Receipt Date: 20180426
  Transmission Date: 20180711
  Serious: No
  Sender: FDA-Public Use
  Company Number: US-PFIZER INC-2017175283

PATIENT
  Age: 65 Year
  Sex: Male

DRUGS (1)
  1. XELJANZ XR [Suspect]
     Active Substance: TOFACITINIB CITRATE
     Indication: POLYARTHRITIS
     Dosage: 11 MG, UNK

REACTIONS (3)
  - Product use in unapproved indication [Unknown]
  - Blood pressure increased [Unknown]
  - Cough [Unknown]

NARRATIVE: CASE EVENT DATE: 20170419
